FAERS Safety Report 17886022 (Version 1)
Quarter: 2020Q2

REPORT INFORMATION
  Report Type: Spontaneous
  Country: FR (occurrence: FR)
  Receive Date: 20200611
  Receipt Date: 20200611
  Transmission Date: 20200714
  Serious: Yes (Hospitalization, Other)
  Sender: FDA-Public Use
  Company Number: FR-PFIZER INC-2020217627

PATIENT
  Age: 28 Year
  Sex: Male

DRUGS (6)
  1. LYRICA [Suspect]
     Active Substance: PREGABALIN
     Dosage: 100 MG, DAILY (DECREASING)
  2. LYRICA [Suspect]
     Active Substance: PREGABALIN
     Dosage: UNK (INCREASE THE DOSE)
  3. LYRICA [Suspect]
     Active Substance: PREGABALIN
     Dosage: 450MG/DAY
  4. LYRICA [Suspect]
     Active Substance: PREGABALIN
     Indication: DRUG DEPENDENCE
     Dosage: UNK (MEAN DAILY DOSE OF PRG WAS 2,9 G) (1.5 TO 2 G PER DAY FOR 2 YEARS)
  5. LYRICA [Suspect]
     Active Substance: PREGABALIN
     Dosage: 300 MG, DAILY (THREE DIVIDED DOSES)
     Route: 048
  6. LYRICA [Suspect]
     Active Substance: PREGABALIN
     Dosage: 600 MG (LAST DOSE)

REACTIONS (11)
  - Product use in unapproved indication [Unknown]
  - Disinhibition [Unknown]
  - Off label use [Unknown]
  - Libido increased [Unknown]
  - Drug abuse [Unknown]
  - Dyspepsia [Unknown]
  - Anxiety [Unknown]
  - Withdrawal syndrome [Unknown]
  - Drug dependence [Unknown]
  - Euphoric mood [Unknown]
  - Pain [Unknown]
